FAERS Safety Report 13668523 (Version 2)
Quarter: 2025Q4

REPORT INFORMATION
  Report Type: Spontaneous
  Country: TR (occurrence: TR)
  Receive Date: 20170620
  Receipt Date: 20251201
  Transmission Date: 20260118
  Serious: Yes (Death, Life-Threatening, Hospitalization, Other)
  Sender: ALKEM
  Company Number: None

PATIENT
  Age: 54 Year
  Sex: Male

DRUGS (14)
  1. MYCOPHENOLATE MOFETIL [Suspect]
     Active Substance: MYCOPHENOLATE MOFETIL
     Indication: Immunosuppressant drug therapy
     Dosage: 2 GRAM, QD
     Route: 065
  2. TACROLIMUS [Suspect]
     Active Substance: TACROLIMUS
     Indication: Immunosuppressant drug therapy
     Dosage: UNK
     Route: 065
  3. TACROLIMUS [Suspect]
     Active Substance: TACROLIMUS
     Dosage: UNK (REDUCED DOSE)
     Route: 065
  4. TACROLIMUS [Suspect]
     Active Substance: TACROLIMUS
     Dosage: 0.2 MILLIGRAM/KILOGRAM, QD
     Route: 065
     Dates: start: 2013
  5. THYMOCYTE IMMUNE GLOBULIN NOS [Suspect]
     Active Substance: THYMOCYTE IMMUNE GLOBULIN NOS
     Indication: Immunosuppressant drug therapy
     Dosage: 2.5 MILLIGRAM/KILOGRAM, QD
     Route: 065
  6. PREDNISOLONE [Suspect]
     Active Substance: PREDNISOLONE
     Indication: Immunosuppressant drug therapy
     Dosage: 20 MILLIGRAM, QD (MAINTENANCE TREATMENT)
     Route: 065
     Dates: start: 20130830
  7. PREDNISOLONE [Suspect]
     Active Substance: PREDNISOLONE
     Dosage: 5 MILLIGRAM, QD
     Route: 065
  8. PREDNISOLONE [Suspect]
     Active Substance: PREDNISOLONE
     Dosage: 10 MILLIGRAM, QD
     Route: 065
     Dates: start: 2014
  9. PREDNISOLONE [Suspect]
     Active Substance: PREDNISOLONE
     Dosage: 1000 MILLIGRAM, QD
     Route: 065
     Dates: start: 20130823, end: 20130830
  10. NYSTATIN [Concomitant]
     Active Substance: NYSTATIN
     Indication: Antifungal prophylaxis
     Dosage: UNK (DROPS)
     Route: 048
  11. Pyrimethamine, Sulfadoxine [Concomitant]
     Indication: Prophylaxis
     Dosage: UNK
     Route: 065
  12. Pyrimethamine, Sulfadoxine [Concomitant]
     Indication: Pneumocystis jirovecii pneumonia
  13. SIROLIMUS [Concomitant]
     Active Substance: SIROLIMUS
     Indication: Product used for unknown indication
     Dosage: UNK
     Route: 065
  14. VALACYCLOVIR HYDROCHLORIDE [Concomitant]
     Active Substance: VALACYCLOVIR HYDROCHLORIDE
     Indication: Antiviral prophylaxis
     Dosage: UNK
     Route: 048

REACTIONS (7)
  - Non-Hodgkin^s lymphoma stage III [Fatal]
  - Squamous cell carcinoma [Fatal]
  - Post transplant lymphoproliferative disorder [Fatal]
  - Aspergillus infection [Fatal]
  - Cerebral aspergillosis [Fatal]
  - Opportunistic infection [Fatal]
  - Transplant rejection [Unknown]
